FAERS Safety Report 22096259 (Version 2)
Quarter: 2023Q1

REPORT INFORMATION
  Report Type: Spontaneous
  Country: US (occurrence: US)
  Receive Date: 20230315
  Receipt Date: 20230317
  Transmission Date: 20230417
  Serious: Yes (Hospitalization)
  Sender: FDA-Public Use
  Company Number: US-GBT-020798

PATIENT
  Sex: Male

DRUGS (1)
  1. OXBRYTA [Suspect]
     Active Substance: VOXELOTOR
     Indication: Sickle cell disease
     Route: 048
     Dates: start: 2021

REACTIONS (8)
  - Sickle cell anaemia with crisis [Unknown]
  - Haemoglobin decreased [Unknown]
  - Product dose omission issue [Unknown]
  - Weight decreased [Unknown]
  - Viral infection [Unknown]
  - Sickle cell anaemia with crisis [Unknown]
  - Fatigue [Not Recovered/Not Resolved]
  - Nausea [Recovered/Resolved]

NARRATIVE: CASE EVENT DATE: 20230101
